FAERS Safety Report 16985679 (Version 1)
Quarter: 2019Q4

REPORT INFORMATION
  Report Type: Report from Study
  Country: IT (occurrence: IT)
  Receive Date: 20191101
  Receipt Date: 20191101
  Transmission Date: 20200122
  Serious: Yes (Hospitalization)
  Sender: FDA-Public Use
  Company Number: IT-PFIZER INC-2019464503

PATIENT
  Age: 85 Year
  Sex: Female

DRUGS (7)
  1. LANSOX [Concomitant]
     Active Substance: LANSOPRAZOLE
     Dosage: UNK
  2. SOTALEX [Concomitant]
     Active Substance: SOTALOL
     Dosage: UNK
  3. SIVASTIN [Concomitant]
     Active Substance: SIMVASTATIN
     Dosage: UNK
  4. LORAZEPAM. [Suspect]
     Active Substance: LORAZEPAM
     Indication: INSOMNIA
     Dosage: UNK
     Route: 048
  5. CONTRAMAL [Concomitant]
     Active Substance: TRAMADOL HYDROCHLORIDE
     Dosage: UNK
  6. OPTALIDON [BUTALBITAL;CAFFEINE;PROPYPHENAZONE] [Suspect]
     Active Substance: BUTALBITAL\CAFFEINE\PROPYPHENAZONE
     Indication: ARTHRALGIA
     Dosage: UNK
  7. FERRO GRAD C [Concomitant]
     Dosage: UNK

REACTIONS (2)
  - Syncope [Recovering/Resolving]
  - Loss of consciousness [Recovering/Resolving]

NARRATIVE: CASE EVENT DATE: 20190826
